FAERS Safety Report 7557157-3 (Version None)
Quarter: 2011Q2

REPORT INFORMATION
  Report Type: 
  Country: None (occurrence: None)
  Receive Date: 20110620
  Receipt Date: 20110607
  Transmission Date: 20111010
  Serious: Yes (Life-Threatening, Hospitalization)
  Sender: FDA-Public Use
  Company Number: US-ROCHE-743811

PATIENT
  Age: 62 Year
  Sex: Male
  Weight: 89 kg

DRUGS (10)
  1. ZOLOFT [Concomitant]
  2. BEVACIZUMAB [Suspect]
     Route: 042
     Dates: start: 20110127
  3. BEVACIZUMAB [Suspect]
     Route: 042
     Dates: start: 20110224
  4. COMPAZINE [Concomitant]
  5. KEPPRA [Concomitant]
  6. FEXOFENADINE [Concomitant]
  7. BEVACIZUMAB [Suspect]
     Indication: GLIOBLASTOMA MULTIFORME
     Dosage: DF:INFUSTION,OVER 30-90MIN ON DAY 1 OF WKS 4...LASTDOSE:14OCT10.TREATMENT DELAY
     Route: 042
     Dates: start: 20100812
  8. NASACORT [Concomitant]
  9. PROVIGIL [Concomitant]
  10. TEMOZOLOMIDE [Suspect]
     Indication: GLIOBLASTOMA MULTIFORME
     Dosage: 150-200MG/M2 D1-5, (CYCLE 4 WEEKS), 75 MG/M2 QD(CYCLE 6 WEEKS) LAST DOSE PRIOR TO SAE:28OCT10
     Route: 048
     Dates: start: 20100812

REACTIONS (1)
  - DEPRESSION [None]
